FAERS Safety Report 14030361 (Version 2)
Quarter: 2017Q4

REPORT INFORMATION
  Report Type: Spontaneous
  Country: PT (occurrence: PT)
  Receive Date: 20171002
  Receipt Date: 20171010
  Transmission Date: 20180321
  Serious: Yes (Death, Hospitalization, Other)
  Sender: FDA-Public Use
  Company Number: PT-ROCHE-2000378

PATIENT
  Age: 74 Year
  Sex: Male
  Weight: 91 kg

DRUGS (8)
  1. HYGROTON [Concomitant]
     Active Substance: CHLORTHALIDONE
  2. SIMVASTATIN. [Concomitant]
     Active Substance: SIMVASTATIN
  3. ESBRIET [Suspect]
     Active Substance: PIRFENIDONE
     Dosage: 2 CAPSULES TWO TIMES PER DAY
     Route: 048
     Dates: start: 20170901, end: 20170912
  4. ZANIPRESS [Concomitant]
     Active Substance: ENALAPRIL MALEATE\LERCANIDIPINE HYDROCHLORIDE
  5. AZATHIOPRINE. [Concomitant]
     Active Substance: AZATHIOPRINE
     Route: 065
  6. OXYGEN. [Concomitant]
     Active Substance: OXYGEN
     Route: 065
     Dates: start: 2016
  7. ESBRIET [Suspect]
     Active Substance: PIRFENIDONE
     Indication: IDIOPATHIC PULMONARY FIBROSIS
     Dosage: 3 CAPSULES OF 267 MG THREE TIMES PER DAY
     Route: 048
     Dates: start: 20170807, end: 20170831
  8. ASPIRINA [Concomitant]
     Active Substance: ASPIRIN

REACTIONS (6)
  - Craniocerebral injury [Unknown]
  - Dyspepsia [Unknown]
  - General physical health deterioration [Unknown]
  - Fall [Unknown]
  - Cardio-respiratory arrest [Fatal]
  - Hypoxia [Unknown]

NARRATIVE: CASE EVENT DATE: 20170912
